FAERS Safety Report 4432835-3 (Version None)
Quarter: 2004Q3

REPORT INFORMATION
  Report Type: 
  Country: None (occurrence: None)
  Receive Date: 20040823
  Receipt Date: 20040810
  Transmission Date: 20050211
  Serious: Yes (Other)
  Sender: FDA-Public Use
  Company Number: 2004052008

PATIENT
  Age: 12 Month
  Sex: 0

DRUGS (1)
  1. UNASYN [Suspect]
     Indication: LOWER RESPIRATORY TRACT INFLAMMATION
     Dosage: (3 IN 1 D), INTRAVENOUS
     Route: 042

REACTIONS (1)
  - STAPHYLOCOCCAL INFECTION [None]
